FAERS Safety Report 8012972-7 (Version None)
Quarter: 2011Q4

REPORT INFORMATION
  Report Type: 
  Country: None (occurrence: None)
  Receive Date: 20111229
  Receipt Date: 20111223
  Transmission Date: 20120403
  Serious: Yes (Other)
  Sender: FDA-Public Use
  Company Number: FR-JNJFOC-20111100532

PATIENT
  Sex: Female
  Weight: 75 kg

DRUGS (6)
  1. RISPERDAL CONSTA [Suspect]
     Route: 030
     Dates: start: 20101101, end: 20110401
  2. LEVOTHYROXINE SODIUM [Concomitant]
     Route: 065
     Dates: start: 20070101, end: 20080101
  3. DEPAKOTE [Concomitant]
     Indication: PRODUCT USED FOR UNKNOWN INDICATION
     Route: 065
     Dates: start: 20060101
  4. RISPERDAL CONSTA [Suspect]
     Route: 030
     Dates: start: 20110401
  5. RISPERDAL CONSTA [Suspect]
     Indication: PSYCHOTIC DISORDER
     Route: 030
     Dates: start: 20091013, end: 20101101
  6. LEVOTHYROXINE SODIUM [Concomitant]
     Indication: THYROID DISORDER
     Route: 065
     Dates: start: 20080101

REACTIONS (3)
  - EYE IRRITATION [None]
  - LACRIMATION INCREASED [None]
  - VISUAL ACUITY REDUCED [None]
